FAERS Safety Report 25199607 (Version 1)
Quarter: 2025Q2

REPORT INFORMATION
  Report Type: Spontaneous
  Country: US (occurrence: US)
  Receive Date: 20250415
  Receipt Date: 20250415
  Transmission Date: 20250717
  Serious: Yes (Life-Threatening, Hospitalization, Congenital Anomaly, Other)
  Sender: Norvium Bioscience
  Company Number: US-Norvium Bioscience LLC-080048

PATIENT
  Sex: Female
  Weight: 1.2 kg

DRUGS (3)
  1. ESCITALOPRAM OXALATE [Suspect]
     Active Substance: ESCITALOPRAM OXALATE
     Indication: Product used for unknown indication
     Route: 064
  2. ARIPIPRAZOLE [Suspect]
     Active Substance: ARIPIPRAZOLE
     Indication: Product used for unknown indication
     Route: 064
  3. METHYLPHENIDATE [Suspect]
     Active Substance: METHYLPHENIDATE
     Indication: Product used for unknown indication
     Route: 064

REACTIONS (7)
  - Haemangioma [Recovered/Resolved]
  - Neonatal respiratory distress [Recovered/Resolved]
  - Pyelocaliectasis [Recovered/Resolved]
  - Plagiocephaly [Recovered/Resolved]
  - Torticollis [Recovered/Resolved]
  - Premature baby [Unknown]
  - Foetal exposure during pregnancy [Unknown]

NARRATIVE: CASE EVENT DATE: 20220712
